FAERS Safety Report 19841278 (Version 3)
Quarter: 2021Q4

REPORT INFORMATION
  Report Type: Other
  Country: US (occurrence: US)
  Receive Date: 20210916
  Receipt Date: 20211101
  Transmission Date: 20220303
  Serious: No
  Sender: FDA-Public Use
  Company Number: US-NEUROCRINE BIOSCIENCES INC.-2021NBI05010

PATIENT

DRUGS (1)
  1. INGREZZA [Suspect]
     Active Substance: VALBENAZINE
     Indication: Tardive dyskinesia
     Dosage: 40 MILLIGRAM, QD
     Route: 048
     Dates: start: 20210902

REACTIONS (8)
  - Psychomotor hyperactivity [Unknown]
  - Logorrhoea [Unknown]
  - Decreased appetite [Unknown]
  - Depressed mood [Unknown]
  - Hyperhidrosis [Unknown]
  - Initial insomnia [Unknown]
  - Restlessness [Unknown]
  - Dizziness [Unknown]

NARRATIVE: CASE EVENT DATE: 20210101
